FAERS Safety Report 6979482-7 (Version None)
Quarter: 2010Q3

REPORT INFORMATION
  Report Type: 
  Country: None (occurrence: None)
  Receive Date: 20100913
  Receipt Date: 20100906
  Transmission Date: 20110219
  Serious: No
  Sender: FDA-Public Use
  Company Number: ZA-ABBOTT-10P-143-0666167-00

PATIENT
  Sex: Male

DRUGS (5)
  1. HUMIRA [Suspect]
     Indication: RHEUMATOID ARTHRITIS
     Route: 058
     Dates: start: 20100301, end: 20100701
  2. HUMIRA [Suspect]
     Route: 058
     Dates: start: 20100806
  3. ANTI-INFLAMMATORIES [Concomitant]
     Indication: PRODUCT USED FOR UNKNOWN INDICATION
  4. METHOTREXATE [Concomitant]
     Indication: PRODUCT USED FOR UNKNOWN INDICATION
  5. FOLIC ACID [Concomitant]
     Indication: PRODUCT USED FOR UNKNOWN INDICATION

REACTIONS (6)
  - DIZZINESS [None]
  - HEADACHE [None]
  - MALAISE [None]
  - PALPITATIONS [None]
  - PYREXIA [None]
  - RHEUMATOID ARTHRITIS [None]
